FAERS Safety Report 9611953 (Version 1)
Quarter: 2013Q4

REPORT INFORMATION
  Report Type: Spontaneous
  Country: US (occurrence: US)
  Receive Date: 20131010
  Receipt Date: 20131010
  Transmission Date: 20140711
  Serious: Yes (Hospitalization, Other)
  Sender: FDA-Public Use
  Company Number: US-SA-2013SA097832

PATIENT
  Age: 74 Year
  Sex: Female

DRUGS (2)
  1. LANTUS SOLOSTAR [Suspect]
     Indication: TYPE 2 DIABETES MELLITUS
     Dosage: DOSE:26 UNIT(S)
     Route: 051
  2. SOLOSTAR [Concomitant]

REACTIONS (12)
  - Fall [Unknown]
  - Pneumonia [Unknown]
  - Deafness [Unknown]
  - Renal disorder [Unknown]
  - Adverse event [Unknown]
  - Cataract [Unknown]
  - Visual acuity reduced [Unknown]
  - Neuropathy peripheral [Unknown]
  - Ulcer [Unknown]
  - Balance disorder [Unknown]
  - Malaise [Unknown]
  - Weight increased [Unknown]
